FAERS Safety Report 5576546-X (Version None)
Quarter: 2007Q4

REPORT INFORMATION
  Report Type: 
  Country: None (occurrence: None)
  Receive Date: 20071228
  Receipt Date: 20071221
  Transmission Date: 20080405
  Serious: Yes (Other)
  Sender: FDA-Public Use
  Company Number: B0501093A

PATIENT
  Age: 27 Year
  Sex: Female

DRUGS (3)
  1. LAMICTAL [Suspect]
     Indication: EPILEPSY
     Route: 048
  2. YASMIN [Suspect]
     Indication: CONTRACEPTION
     Dosage: .03MG PER DAY
     Route: 048
  3. LYRICA [Concomitant]
     Indication: EPILEPSY
     Route: 048
     Dates: start: 20060101

REACTIONS (1)
  - METRORRHAGIA [None]
